FAERS Safety Report 8309102-0 (Version None)
Quarter: 2012Q2

REPORT INFORMATION
  Report Type: 
  Country: None (occurrence: None)
  Receive Date: 20120424
  Receipt Date: 20120420
  Transmission Date: 20120825
  Serious: Yes (Hospitalization)
  Sender: FDA-Public Use
  Company Number: IT-PFIZER INC-2012076868

PATIENT
  Age: 77 Year
  Sex: Male

DRUGS (11)
  1. PREDNISONE TAB [Concomitant]
  2. ZITHROMAX [Suspect]
     Indication: BRONCHITIS
     Dosage: 500 MG DAILY
     Route: 048
     Dates: start: 20091215, end: 20091221
  3. WARFARIN SODIUM [Suspect]
     Indication: PULMONARY EMBOLISM
     Dosage: 1 UNIT DOSE AS NEEDED
     Route: 048
     Dates: start: 20080101, end: 20091221
  4. TRINIPLAS [Concomitant]
  5. LASIX [Concomitant]
  6. TRAZODONE HCL [Concomitant]
  7. ALBUTEROL SULFATE [Concomitant]
  8. OXIVENT [Concomitant]
  9. URACTONE [Concomitant]
  10. NEXIUM [Concomitant]
  11. BECLOMETHASONE DIPROPIONATE [Concomitant]

REACTIONS (1)
  - HYPOCOAGULABLE STATE [None]
